FAERS Safety Report 20226006 (Version 1)
Quarter: 2021Q4

REPORT INFORMATION
  Report Type: Spontaneous
  Country: DE (occurrence: DE)
  Receive Date: 20211224
  Receipt Date: 20211224
  Transmission Date: 20220304
  Serious: Yes (Hospitalization)
  Sender: FDA-Public Use
  Company Number: DE-ADRED-06699-03

PATIENT
  Age: 62 Year
  Sex: Female

DRUGS (17)
  1. CAPECITABINE [Suspect]
     Active Substance: CAPECITABINE
     Indication: Product used for unknown indication
     Dosage: SCHEMA
     Route: 048
  2. CHLORTHALIDONE [Concomitant]
     Active Substance: CHLORTHALIDONE
     Dosage: 25 MG, 1-0-0-0
  3. SPIRONOLACTONE [Concomitant]
     Active Substance: SPIRONOLACTONE
     Dosage: 25 MG, 1-0-0-0
  4. HALOPERIDOL [Concomitant]
     Active Substance: HALOPERIDOL
     Dosage: 0.3 MG, BEDARF
  5. PANTOPRAZOLE [Concomitant]
     Active Substance: PANTOPRAZOLE
     Dosage: 40 MG, 1-0-1-0
  6. RIFAXIMIN [Concomitant]
     Active Substance: RIFAXIMIN
     Dosage: 550 MG, 1-0-1-0
  7. NITRENDIPINE [Concomitant]
     Active Substance: NITRENDIPINE
     Dosage: 5 MG, BEDARF
  8. LORAZEPAM [Concomitant]
     Active Substance: LORAZEPAM
     Dosage: 0.5 MG, BEDARF
  9. LORAZEPAM [Concomitant]
     Active Substance: LORAZEPAM
     Dosage: 0.5 MG, 1-0-0-1
  10. FLUOXETINE [Concomitant]
     Active Substance: FLUOXETINE HYDROCHLORIDE
     Dosage: 20 MG, 1-0-0-0
  11. POTASSIUM CITRATE [Concomitant]
     Active Substance: POTASSIUM CITRATE
     Dosage: 0-1-0-0
  12. AMLODIPINE [Concomitant]
     Active Substance: AMLODIPINE BESYLATE
     Dosage: 5 MG, 1-0-0-0
  13. HERBALS\PLANTAGO OVATA SEED [Concomitant]
     Active Substance: HERBALS\PLANTAGO OVATA SEED
     Dosage: 1-1-0-0
  14. CANDESARTAN [Concomitant]
     Active Substance: CANDESARTAN
     Dosage: 16 MG, 2-0-0-0
  15. MORPHINE [Concomitant]
     Active Substance: MORPHINE
     Dosage: 5 MG, BEDARF
  16. METAMIZOLE [Concomitant]
     Active Substance: METAMIZOLE
     Dosage: 1 G, 1-1-1-1
  17. Carvedilol/Hydrochlorothiazide [Concomitant]

REACTIONS (19)
  - Renal impairment [Unknown]
  - Systemic infection [Unknown]
  - Tachycardia [Unknown]
  - Paresis [Unknown]
  - Dyspnoea [Unknown]
  - Disturbance in attention [Unknown]
  - Vomiting [Unknown]
  - Cough [Unknown]
  - Hypotension [Unknown]
  - Hemiplegia [Unknown]
  - Hyponatraemia [Unknown]
  - Angina pectoris [Unknown]
  - Anaemia [Unknown]
  - Dehydration [Unknown]
  - Anaemia of malignant disease [Unknown]
  - Hyperkalaemia [Unknown]
  - Condition aggravated [Unknown]
  - General physical health deterioration [Unknown]
  - Wheezing [Unknown]
